FAERS Safety Report 23968966 (Version 1)
Quarter: 2024Q2

REPORT INFORMATION
  Report Type: Spontaneous
  Country: US (occurrence: None)
  Receive Date: 20240612
  Receipt Date: 20240612
  Transmission Date: 20240715
  Serious: No
  Sender: FDA-Public Use
  Company Number: None

PATIENT
  Age: 61 Year
  Sex: Female
  Weight: 85.5 kg

DRUGS (3)
  1. PATADAY [Suspect]
     Active Substance: OLOPATADINE HYDROCHLORIDE
     Indication: Eye irritation
     Dosage: FREQUENCY : DAILY;?
     Route: 047
     Dates: start: 20240530, end: 20240611
  2. NEOMYCIN AND POLYMYXIN AND DEXAMETHASONE OPTHALMIC SUSP [Concomitant]
  3. ZYRTEC [Concomitant]
     Active Substance: CETIRIZINE HYDROCHLORIDE

REACTIONS (6)
  - Eye irritation [None]
  - Eye pruritus [None]
  - Eye irritation [None]
  - Ocular hyperaemia [None]
  - Eye swelling [None]
  - Therapy cessation [None]

NARRATIVE: CASE EVENT DATE: 20240530
